FAERS Safety Report 10226347 (Version 1)
Quarter: 2014Q2

REPORT INFORMATION
  Report Type: Report from Study
  Country: US (occurrence: US)
  Receive Date: 20140609
  Receipt Date: 20140609
  Transmission Date: 20141212
  Serious: Yes (Other)
  Sender: FDA-Public Use
  Company Number: US-ABBVIE-14P-163-1244766-00

PATIENT
  Age: 25 Year
  Sex: 0

DRUGS (3)
  1. NORVIR [Suspect]
     Indication: ANTIRETROVIRAL THERAPY
     Dosage: COURSE 1
     Route: 048
  2. DARUNAVIR [Suspect]
     Indication: ANTIRETROVIRAL THERAPY
     Dosage: COURSE 1
     Route: 048
  3. EPZICOM [Suspect]
     Indication: ANTIRETROVIRAL THERAPY
     Dosage: COURSE 1
     Route: 048

REACTIONS (1)
  - Abortion spontaneous [Unknown]
